FAERS Safety Report 4434239-6 (Version None)
Quarter: 2004Q3

REPORT INFORMATION
  Report Type: 
  Country: None (occurrence: None)
  Receive Date: 20040825
  Receipt Date: 20040805
  Transmission Date: 20050211
  Serious: Yes (Other)
  Sender: FDA-Public Use
  Company Number: JP_040804120

PATIENT
  Age: 85 Year
  Sex: Male

DRUGS (4)
  1. GEMZAR [Suspect]
     Indication: NON-SMALL CELL LUNG CANCER
     Dosage: 800 MG OTHER
     Dates: end: 20040729
  2. PARAPLATIN [Concomitant]
  3. NASEA (RAMOSETRON HYDROCHLORIDE) [Concomitant]
  4. DECARDRON #1 (DEXAMETHASONE SODIUM PHOSPHATE) [Concomitant]

REACTIONS (2)
  - INJECTION SITE NECROSIS [None]
  - INJECTION SITE VESICLES [None]
